FAERS Safety Report 5273505-1 (Version None)
Quarter: 2007Q1

REPORT INFORMATION
  Report Type: 
  Country: None (occurrence: None)
  Receive Date: 20070321
  Receipt Date: 20070321
  Transmission Date: 20070707
  Serious: Yes (Other)
  Sender: FDA-Public Use
  Company Number: None

PATIENT
  Age: 80 Year
  Sex: Male
  Weight: 84.369 kg

DRUGS (1)
  1. DOXAZOSIN MESYLATE [Suspect]
     Indication: BENIGN PROSTATIC HYPERPLASIA
     Dosage: 1 TABLET BY MOUTH DAILY
     Dates: start: 20040201

REACTIONS (3)
  - DRUG EFFECT DECREASED [None]
  - NOCTURIA [None]
  - PHARMACEUTICAL PRODUCT COMPLAINT [None]
